FAERS Safety Report 21851448 (Version 1)
Quarter: 2023Q1

REPORT INFORMATION
  Report Type: Spontaneous
  Country: None (occurrence: US)
  Receive Date: 20230112
  Receipt Date: 20230112
  Transmission Date: 20230418
  Serious: Yes (Other)
  Sender: FDA-Public Use
  Company Number: US-Ajanta Pharma USA Inc.-2136623

PATIENT
  Sex: Male

DRUGS (2)
  1. DULOXETINE [Suspect]
     Active Substance: DULOXETINE
     Indication: Arthralgia
     Route: 048
     Dates: start: 202211, end: 202211
  2. CAFFEINE CITRATE [Concomitant]
     Active Substance: CAFFEINE CITRATE

REACTIONS (12)
  - Hallucination [Not Recovered/Not Resolved]
  - Arthralgia [Not Recovered/Not Resolved]
  - Memory impairment [Not Recovered/Not Resolved]
  - Cardiac disorder [Not Recovered/Not Resolved]
  - False positive investigation result [Not Recovered/Not Resolved]
  - Arthritis [Not Recovered/Not Resolved]
  - Eating disorder [Not Recovered/Not Resolved]
  - Drug ineffective [Recovered/Resolved]
  - Psychotic disorder [Not Recovered/Not Resolved]
  - Anxiety [Not Recovered/Not Resolved]
  - Vision blurred [Not Recovered/Not Resolved]
  - Feeling abnormal [Not Recovered/Not Resolved]

NARRATIVE: CASE EVENT DATE: 20221101
